FAERS Safety Report 24211898 (Version 1)
Quarter: 2024Q3

REPORT INFORMATION
  Report Type: Report from Study
  Country: US (occurrence: US)
  Receive Date: 20240814
  Receipt Date: 20240814
  Transmission Date: 20241016
  Serious: Yes (Hospitalization, Other)
  Sender: ABBVIE
  Company Number: US-ABBVIE-5877743

PATIENT
  Sex: Female

DRUGS (1)
  1. RINVOQ [Suspect]
     Active Substance: UPADACITINIB
     Indication: Rheumatoid arthritis
     Route: 048
     Dates: start: 20231103, end: 2024

REACTIONS (4)
  - Arthritis bacterial [Not Recovered/Not Resolved]
  - Pain [Unknown]
  - Full blood count abnormal [Unknown]
  - Gait inability [Unknown]
